FAERS Safety Report 5627195-6 (Version None)
Quarter: 2008Q1

REPORT INFORMATION
  Report Type: 
  Country: None (occurrence: None)
  Receive Date: 20080212
  Receipt Date: 20080212
  Transmission Date: 20080703
  Serious: Yes (Life-Threatening)
  Sender: FDA-Public Use
  Company Number: None

PATIENT
  Age: 6 Year
  Sex: Male
  Weight: 20.4119 kg

DRUGS (1)
  1. BOTOX [Suspect]

REACTIONS (4)
  - RASH [None]
  - RESPIRATORY DISTRESS [None]
  - SWELLING FACE [None]
  - THROAT TIGHTNESS [None]
